FAERS Safety Report 25996386 (Version 1)
Quarter: 2025Q4

REPORT INFORMATION
  Report Type: Spontaneous
  Country: EU (occurrence: EU)
  Receive Date: 20251104
  Receipt Date: 20251104
  Transmission Date: 20260118
  Serious: Yes (Other)
  Sender: MYLAN
  Company Number: None

PATIENT
  Age: 25 Year
  Sex: Male

DRUGS (4)
  1. ACETAMINOPHEN [Suspect]
     Active Substance: ACETAMINOPHEN
     Indication: Product used for unknown indication
     Dosage: 16 GRAM,(16 G OVER 16 HOURS)
     Dates: start: 20250322, end: 20250322
  2. ACETAMINOPHEN [Suspect]
     Active Substance: ACETAMINOPHEN
     Dosage: 16 GRAM,(16 G OVER 16 HOURS)
     Route: 048
     Dates: start: 20250322, end: 20250322
  3. ACETAMINOPHEN [Suspect]
     Active Substance: ACETAMINOPHEN
     Dosage: 16 GRAM,(16 G OVER 16 HOURS)
     Route: 048
     Dates: start: 20250322, end: 20250322
  4. ACETAMINOPHEN [Suspect]
     Active Substance: ACETAMINOPHEN
     Dosage: 16 GRAM,(16 G OVER 16 HOURS)
     Dates: start: 20250322, end: 20250322

REACTIONS (1)
  - Accidental overdose [Recovered/Resolved]

NARRATIVE: CASE EVENT DATE: 20250323
